FAERS Safety Report 5081057-4 (Version None)
Quarter: 2006Q3

REPORT INFORMATION
  Report Type: 
  Country: None (occurrence: None)
  Receive Date: 20060720
  Receipt Date: 20051219
  Transmission Date: 20061208
  Serious: Yes (Hospitalization, Other)
  Sender: FDA-Public Use
  Company Number: 2005171009

PATIENT
  Age: 85 Year
  Sex: Female
  Weight: 50.8029 kg

DRUGS (5)
  1. CELEBREX [Suspect]
     Indication: OSTEOARTHRITIS
     Dosage: 200 MG (200 MG,1 IN 1 D),ORAL
     Route: 048
  2. PROSOM (ESTAZOLAM) [Concomitant]
  3. COMPAZINE [Concomitant]
  4. FOSAMAX [Concomitant]
  5. TRIAMTERENE (TRIAMTERENE) [Concomitant]

REACTIONS (3)
  - BLOOD SODIUM DECREASED [None]
  - FALL [None]
  - FRACTURE [None]
